FAERS Safety Report 10015931 (Version 1)
Quarter: 2014Q1

REPORT INFORMATION
  Report Type: Spontaneous
  Country: NL (occurrence: NL)
  Receive Date: 20140317
  Receipt Date: 20140317
  Transmission Date: 20141002
  Serious: Yes (Other)
  Sender: FDA-Public Use
  Company Number: NL-PFIZER INC-2014075803

PATIENT
  Age: 56 Year
  Sex: Female
  Weight: 56 kg

DRUGS (5)
  1. VENLAFAXINE HCL [Suspect]
     Indication: DEPRESSION
     Dosage: 75 MG, 1X/DAY
     Dates: start: 1990
  2. TRIAMCINOLONE ACETONIDE [Interacting]
     Indication: ARTHRITIS
     Dosage: 40 MG, UNK
     Dates: start: 20120218
  3. LEVOTHYROXINE [Interacting]
     Dosage: 0.1 MG, 1X/DAY
     Dates: start: 1990
  4. LEVOTHYROXINE [Interacting]
     Dosage: 0.025 MG, 1X/DAY
  5. BROMAZEPAM [Concomitant]
     Dosage: 3 MG, 1X/DAY
     Dates: start: 1985

REACTIONS (10)
  - Drug interaction [Not Recovered/Not Resolved]
  - Altered state of consciousness [Not Recovered/Not Resolved]
  - Psychomotor hyperactivity [Not Recovered/Not Resolved]
  - Insomnia [Not Recovered/Not Resolved]
  - Panic attack [Not Recovered/Not Resolved]
  - Night sweats [Not Recovered/Not Resolved]
  - Anxiety [Not Recovered/Not Resolved]
  - Hormone level abnormal [Not Recovered/Not Resolved]
  - Affect lability [Not Recovered/Not Resolved]
  - Agitation [Not Recovered/Not Resolved]
